FAERS Safety Report 18416553 (Version 4)
Quarter: 2021Q1

REPORT INFORMATION
  Report Type: Report from Study
  Country: US (occurrence: US)
  Receive Date: 20201022
  Receipt Date: 20210208
  Transmission Date: 20210419
  Serious: No
  Sender: FDA-Public Use
  Company Number: NVSC2020US283436

PATIENT
  Age: 70 Year
  Sex: Male

DRUGS (1)
  1. ENTRESTO [Suspect]
     Active Substance: SACUBITRIL\VALSARTAN
     Indication: PRODUCT USED FOR UNKNOWN INDICATION
     Dosage: UNK UNK, BID
     Route: 048
     Dates: start: 202009

REACTIONS (4)
  - Lung disorder [Unknown]
  - General physical health deterioration [Unknown]
  - Respiratory rate increased [Unknown]
  - Dyspnoea [Unknown]
